FAERS Safety Report 7020679-8 (Version None)
Quarter: 2010Q3

REPORT INFORMATION
  Report Type: 
  Country: None (occurrence: None)
  Receive Date: 20100929
  Receipt Date: 20100920
  Transmission Date: 20110219
  Serious: Yes (Hospitalization, Other)
  Sender: FDA-Public Use
  Company Number: PHHY2010IT62190

PATIENT
  Age: 3 Year
  Sex: Male

DRUGS (4)
  1. CYCLOSPORINE [Suspect]
     Indication: LIVER TRANSPLANT
     Dosage: UNK
  2. CYCLOSPORINE [Suspect]
     Dosage: 1.3 MG/KG/DAY
  3. PREDNISONE [Concomitant]
     Dosage: UNK
  4. AZATHIOPRINE [Concomitant]
     Dosage: 0.8 MG/KG/DAY

REACTIONS (7)
  - ATRIAL FIBRILLATION [None]
  - CHOLESTASIS [None]
  - FAECES DISCOLOURED [None]
  - HEPATIC FIBROSIS [None]
  - JAUNDICE CHOLESTATIC [None]
  - LIVER TRANSPLANT REJECTION [None]
  - PRURITUS [None]
